FAERS Safety Report 8504323 (Version 2)
Quarter: 2013Q1

REPORT INFORMATION
  Report Type: Spontaneous
  Country: JP (occurrence: JP)
  Receive Date: 20120411
  Receipt Date: 20130115
  Transmission Date: 20140127
  Serious: Yes (Hospitalization)
  Sender: FDA-Public Use
  Company Number: JP-GLAXOSMITHKLINE-B0656531A

PATIENT
  Age: 61 None
  Sex: Male

DRUGS (4)
  1. LAMICTAL [Suspect]
     Indication: EPILEPSY
     Dosage: 50MG PER DAY
     Route: 048
     Dates: start: 20100326, end: 20100423
  2. LAMICTAL [Suspect]
     Indication: EPILEPSY
     Dosage: 50MG TWICE PER DAY
     Route: 048
     Dates: start: 20100424, end: 20100508
  3. TEGRETOL [Concomitant]
     Indication: EPILEPSY
     Route: 048
  4. ALEVIATIN [Concomitant]
     Indication: EPILEPSY
     Route: 048
     Dates: start: 2004

REACTIONS (25)
  - Drug reaction with eosinophilia and systemic symptoms [Recovering/Resolving]
  - Drug eruption [Recovering/Resolving]
  - Erythema [Recovering/Resolving]
  - Pyrexia [Recovering/Resolving]
  - Decreased appetite [Recovered/Resolved]
  - Erythema [Recovering/Resolving]
  - Hypophagia [Recovered/Resolved]
  - Rash [Recovering/Resolving]
  - Papule [Recovering/Resolving]
  - Purpura [Recovering/Resolving]
  - Rash pustular [Recovering/Resolving]
  - White blood cell count increased [Recovering/Resolving]
  - Eosinophil count increased [Recovering/Resolving]
  - Hepatic function abnormal [Recovering/Resolving]
  - Malaise [Recovering/Resolving]
  - Erythema [Recovering/Resolving]
  - Scab [Recovering/Resolving]
  - Skin exfoliation [Recovering/Resolving]
  - Erythema [Recovering/Resolving]
  - Swelling face [Recovering/Resolving]
  - Pruritus [Recovering/Resolving]
  - Erythema [Recovering/Resolving]
  - Mouth haemorrhage [Recovering/Resolving]
  - Rash papular [Recovering/Resolving]
  - C-reactive protein increased [Recovering/Resolving]
